FAERS Safety Report 9639261 (Version 2)
Quarter: 2013Q4

REPORT INFORMATION
  Report Type: Spontaneous
  Country: JP (occurrence: JP)
  Receive Date: 20131022
  Receipt Date: 20131022
  Transmission Date: 20140711
  Serious: Yes (Hospitalization)
  Sender: FDA-Public Use
  Company Number: JP-ROCHE-1260556

PATIENT
  Age: 5 Year
  Sex: Female
  Weight: 21 kg

DRUGS (7)
  1. ACTEMRA [Suspect]
     Indication: JUVENILE IDIOPATHIC ARTHRITIS
     Route: 041
     Dates: start: 20130712
  2. PREDONINE [Concomitant]
     Indication: JUVENILE IDIOPATHIC ARTHRITIS
     Route: 048
     Dates: start: 20130613
  3. PREDONINE [Concomitant]
     Indication: JUVENILE IDIOPATHIC ARTHRITIS
     Route: 048
     Dates: start: 20130621
  4. SOLU-CORTEF [Concomitant]
     Indication: PROPHYLAXIS
     Dosage: DOSAGE IS UNCERTAIN.
     Route: 042
     Dates: start: 20130712
  5. ATARAX-P [Concomitant]
     Indication: PROPHYLAXIS
     Dosage: DOSAGE IS UNCERTAIN.
     Route: 042
     Dates: start: 20130712
  6. RANITIDINE [Concomitant]
     Indication: PROPHYLAXIS
     Route: 048
     Dates: start: 20130621
  7. ALFAROL [Concomitant]
     Indication: PROPHYLAXIS
     Route: 048
     Dates: start: 20130621

REACTIONS (1)
  - Liver disorder [Recovered/Resolved]
